FAERS Safety Report 9523789 (Version 1)
Quarter: 2013Q3

REPORT INFORMATION
  Report Type: Spontaneous
  Country: US (occurrence: None)
  Receive Date: 20130912
  Receipt Date: 20130912
  Transmission Date: 20140515
  Serious: Yes (Hospitalization)
  Sender: FDA-Public Use
  Company Number: None

PATIENT
  Age: 82 Year
  Sex: Female

DRUGS (1)
  1. ACTHAR [Suspect]
     Indication: POLYMYOSITIS
     Route: 030
     Dates: start: 20130509, end: 201308

REACTIONS (1)
  - Deep vein thrombosis [None]
